FAERS Safety Report 11920927 (Version 1)
Quarter: 2016Q1

REPORT INFORMATION
  Report Type: Report from Study
  Country: FR (occurrence: FR)
  Receive Date: 20160115
  Receipt Date: 20160115
  Transmission Date: 20160526
  Serious: Yes (Hospitalization)
  Sender: FDA-Public Use
  Company Number: FR-PFIZER INC-2013257869

PATIENT
  Age: 63 Year
  Sex: Female

DRUGS (5)
  1. CRESTOR 5 [Concomitant]
     Dosage: UNK
  2. TARDYFERON [Concomitant]
     Active Substance: FERROUS SULFATE\FOLIC ACID
  3. AXITINIB [Suspect]
     Active Substance: AXITINIB
     Indication: RENAL CANCER
     Dosage: 3 MG, 2X/DAY (2 DF DAILY, FOR A TOTAL OF 6 MG EVERY 24 HOURS)
     Route: 048
     Dates: start: 20130528, end: 20130809
  4. LEVOTHYROX [Concomitant]
     Active Substance: LEVOTHYROXINE
  5. COVERSYL 10 [Concomitant]
     Dosage: 1 DF, 1X/DAY

REACTIONS (1)
  - Urinary fistula [Recovered/Resolved]

NARRATIVE: CASE EVENT DATE: 20130822
